FAERS Safety Report 7180070-0 (Version None)
Quarter: 2010Q4

REPORT INFORMATION
  Report Type: 
  Country: None (occurrence: None)
  Receive Date: 20101203
  Receipt Date: 20101202
  Transmission Date: 20110411
  Serious: Yes (Other)
  Sender: FDA-Public Use
  Company Number: TRP_07425_2010

PATIENT
  Sex: Female

DRUGS (2)
  1. RIBASPHERE [Suspect]
     Indication: PRODUCT USED FOR UNKNOWN INDICATION
     Dosage: (DF)
  2. PEGASYS [Suspect]
     Indication: PRODUCT USED FOR UNKNOWN INDICATION
     Dosage: (DF)

REACTIONS (11)
  - ASTHENIA [None]
  - BACK PAIN [None]
  - CONDITION AGGRAVATED [None]
  - DECREASED APPETITE [None]
  - FATIGUE [None]
  - HYPOTENSION [None]
  - INFLUENZA LIKE ILLNESS [None]
  - INJECTION SITE ERYTHEMA [None]
  - PAIN [None]
  - PRURITUS [None]
  - WEIGHT DECREASED [None]
